FAERS Safety Report 5025980-5 (Version None)
Quarter: 2006Q2

REPORT INFORMATION
  Report Type: 
  Country: None (occurrence: None)
  Receive Date: 20060614
  Receipt Date: 20060315
  Transmission Date: 20061013
  Serious: Yes (Death, Hospitalization, Other)
  Sender: FDA-Public Use
  Company Number: US-BRISTOL-MYERS SQUIBB COMPANY-13315304

PATIENT
  Age: 66 Year
  Sex: Female

DRUGS (6)
  1. ORENCIA [Suspect]
     Indication: RHEUMATOID ARTHRITIS
     Route: 042
     Dates: start: 20020903, end: 20060214
  2. SINGULAIR [Concomitant]
     Dates: start: 20031118, end: 20060101
  3. ADVAIR DISKUS 100/50 [Concomitant]
     Dates: start: 20031118, end: 20060101
  4. ALBUTEROL [Concomitant]
     Dates: start: 20031118, end: 20060101
  5. VITAMINS [Concomitant]
  6. PREMARIN [Concomitant]
     Dates: start: 19780101

REACTIONS (8)
  - BRAIN ABSCESS [None]
  - BRAIN MASS [None]
  - CEREBROVASCULAR ACCIDENT [None]
  - DRUG INEFFECTIVE [None]
  - ENCEPHALITIS [None]
  - HEMIPARESIS [None]
  - MIXED OLIGO-ASTROCYTOMA [None]
  - PARAESTHESIA [None]
